FAERS Safety Report 5397368-9 (Version None)
Quarter: 2007Q3

REPORT INFORMATION
  Report Type: 
  Country: None (occurrence: None)
  Receive Date: 20070726
  Receipt Date: 20070721
  Transmission Date: 20080115
  Serious: Yes (Other)
  Sender: FDA-Public Use
  Company Number: PHEH2007US03523

PATIENT
  Age: 66 Year
  Sex: Female

DRUGS (6)
  1. ZOMETA [Suspect]
     Indication: METASTASES TO BONE
     Dosage: 4 MG Q6W
     Dates: start: 20050104, end: 20060701
  2. ZOMETA [Suspect]
     Dosage: 4MG Q4WK
     Route: 042
     Dates: start: 20011106, end: 20040203
  3. AREDIA [Suspect]
     Dosage: 90 MG EVERY 4 WEEKS
     Dates: start: 20010124, end: 20011009
  4. AREDIA [Suspect]
     Dosage: 90 MG EVERY 4 WEEKS
     Dates: start: 20040302, end: 20041210
  5. CORTICOSTEROID NOS [Concomitant]
     Indication: NAUSEA
     Dates: start: 19860101, end: 20050101
  6. FASLODEX [Concomitant]
     Dosage: 250 MG, UNK
     Dates: start: 20040917, end: 20050524

REACTIONS (4)
  - MASS [None]
  - ORAL DISORDER [None]
  - OSTEONECROSIS [None]
  - PAIN IN JAW [None]
